FAERS Safety Report 5057616-1 (Version None)
Quarter: 2006Q3

REPORT INFORMATION
  Report Type: 
  Country: None (occurrence: None)
  Receive Date: 20060721
  Receipt Date: 20051216
  Transmission Date: 20061208
  Serious: No
  Sender: FDA-Public Use
  Company Number: US-GLAXOSMITHKLINE-A0586870A

PATIENT
  Age: 40 Year
  Weight: 67.3 kg

DRUGS (1)
  1. AVANDIA [Suspect]
     Indication: DRUG USE FOR UNKNOWN INDICATION
     Route: 048
     Dates: start: 20051102, end: 20051212

REACTIONS (2)
  - RASH PRURITIC [None]
  - SKIN EXFOLIATION [None]
